FAERS Safety Report 10410293 (Version 1)
Quarter: 2014Q3

REPORT INFORMATION
  Report Type: Report from Study
  Country: ZA (occurrence: ZA)
  Receive Date: 20140826
  Receipt Date: 20140826
  Transmission Date: 20150326
  Serious: Yes (Hospitalization, Other)
  Sender: FDA-Public Use
  Company Number: ZA-BAYER-2014-080645

PATIENT
  Sex: Female

DRUGS (5)
  1. AMANTADINE [AMANTADINE] [Concomitant]
  2. TRYPTANOL [Concomitant]
     Active Substance: AMITRIPTYLINE
  3. PANADO [Concomitant]
     Active Substance: ACETAMINOPHEN
     Indication: HEADACHE
  4. EPILIM [Concomitant]
     Active Substance: VALPROATE SODIUM
  5. BETAFERON [Suspect]
     Active Substance: INTERFERON BETA-1B

REACTIONS (22)
  - Limb discomfort [None]
  - Dysphagia [None]
  - Asthenia [None]
  - Fall [None]
  - Convulsion [None]
  - Appetite disorder [None]
  - Injection site bruising [Recovered/Resolved]
  - Multiple sclerosis relapse [None]
  - Convulsion [None]
  - Fatigue [None]
  - Hypersomnia [None]
  - Epilepsy [None]
  - Injection site reaction [None]
  - Cognitive disorder [None]
  - Speech disorder [None]
  - Balance disorder [None]
  - Nausea [None]
  - Memory impairment [None]
  - Amnesia [None]
  - Ataxia [None]
  - Convulsion [Recovering/Resolving]
  - Weight decreased [None]

NARRATIVE: CASE EVENT DATE: 200802
